FAERS Safety Report 8163293-3 (Version None)
Quarter: 2012Q1

REPORT INFORMATION
  Report Type: 
  Country: None (occurrence: None)
  Receive Date: 20120224
  Receipt Date: 20110620
  Transmission Date: 20120608
  Serious: No
  Sender: FDA-Public Use
  Company Number: US-PFIZER INC-K201100728

PATIENT
  Sex: Male
  Weight: 68.027 kg

DRUGS (2)
  1. FLEXERIL [Concomitant]
  2. FLECTOR [Suspect]
     Dosage: 2 PATCHES, FOR TWO CONSECUTIVE DAYS
     Route: 061
     Dates: start: 20110501, end: 20110501

REACTIONS (7)
  - GASTROINTESTINAL INFLAMMATION [None]
  - HYPERSENSITIVITY [None]
  - ABDOMINAL PAIN UPPER [None]
  - NAUSEA [None]
  - HAEMATEMESIS [None]
  - BODY TEMPERATURE FLUCTUATION [None]
  - GASTROINTESTINAL HAEMORRHAGE [None]
